FAERS Safety Report 4802944-5 (Version None)
Quarter: 2005Q4

REPORT INFORMATION
  Report Type: 
  Country: None (occurrence: None)
  Receive Date: 20051017
  Receipt Date: 20051017
  Transmission Date: 20060501
  Serious: Yes (Hospitalization, Other)
  Sender: FDA-Public Use
  Company Number: None

PATIENT
  Sex: Male
  Weight: 81 kg

DRUGS (9)
  1. CAMPATH-1 [Suspect]
     Indication: ACUTE LYMPHOCYTIC LEUKAEMIA
     Dosage: SEE IMAGE
     Dates: start: 20050815
  2. CYCLOPHOSPHAMIDE [Suspect]
     Dosage: SEE IMAGE
     Route: 042
     Dates: start: 20050815, end: 20050815
  3. DAUNORUBICIN [Suspect]
     Dosage: SEE IMAGE
     Route: 042
  4. VINCRISTINE [Suspect]
     Dosage: SEE IMAGE
     Route: 042
  5. DEXAMETHASONE [Suspect]
     Dosage: SEE IMAGE
     Route: 048
     Dates: start: 20050815
  6. L-ASPARAGINASE [Suspect]
     Dosage: SEE IMAGE
     Route: 058
  7. G-CSF [Suspect]
     Dosage: SEE IMAGE
     Route: 058
  8. GLEEVEC [Suspect]
     Dosage: SEE IMAGE
     Route: 048
  9. ACYCLOVIR [Suspect]
     Dosage: SEE IMAGE
     Route: 048

REACTIONS (14)
  - ASPERGILLOMA [None]
  - COUGH [None]
  - DYSPNOEA [None]
  - FUNGAL INFECTION [None]
  - HAEMOPTYSIS [None]
  - INFECTION [None]
  - LUNG DISORDER [None]
  - NEUTROPENIA [None]
  - NODULE [None]
  - PLEURAL EFFUSION [None]
  - PNEUMONIA ASPERGILLUS [None]
  - PULMONARY MASS [None]
  - PYREXIA [None]
  - SEPTIC EMBOLUS [None]
